FAERS Safety Report 16696407 (Version 1)
Quarter: 2019Q3

REPORT INFORMATION
  Report Type: Spontaneous
  Country: ID (occurrence: ID)
  Receive Date: 20190813
  Receipt Date: 20190813
  Transmission Date: 20191004
  Serious: Yes (Death, Other)
  Sender: FDA-Public Use
  Company Number: ID-JNJFOC-20190602931

PATIENT
  Age: 81 Year
  Sex: Male

DRUGS (2)
  1. IMBRUVICA [Suspect]
     Active Substance: IBRUTINIB
     Indication: DIFFUSE LARGE B-CELL LYMPHOMA
     Route: 048
  2. ATEZOLIZUMAB. [Suspect]
     Active Substance: ATEZOLIZUMAB
     Indication: DIFFUSE LARGE B-CELL LYMPHOMA
     Route: 065

REACTIONS (8)
  - Off label use [Unknown]
  - Fatigue [Unknown]
  - Death [Fatal]
  - Neutropenia [Unknown]
  - Lymphopenia [Unknown]
  - Product use in unapproved indication [Unknown]
  - Hyponatraemia [Unknown]
  - Thrombocytopenia [Unknown]
